FAERS Safety Report 9290068 (Version 1)
Quarter: 2013Q2

REPORT INFORMATION
  Report Type: Spontaneous
  Country: GB (occurrence: GB)
  Receive Date: 20130515
  Receipt Date: 20130515
  Transmission Date: 20140414
  Serious: Yes (Other)
  Sender: FDA-Public Use
  Company Number: GB-009507513-1305GBR008923

PATIENT
  Age: 49 Year
  Sex: Male

DRUGS (3)
  1. REBETOL [Suspect]
     Dosage: UNK
     Route: 048
     Dates: start: 20120830
  2. INTERFERON (UNSPECIFIED) [Suspect]
     Indication: HEPATITIS C
     Dosage: UNK
     Route: 058
     Dates: start: 20120830
  3. TELAPREVIR [Suspect]
     Indication: HEPATITIS C
     Dosage: 750 MG, TID
     Dates: start: 20120830, end: 20121122

REACTIONS (1)
  - Hearing impaired [Recovered/Resolved]
